FAERS Safety Report 16197123 (Version 1)
Quarter: 2019Q2

REPORT INFORMATION
  Report Type: Spontaneous
  Country: US (occurrence: US)
  Receive Date: 20190412
  Receipt Date: 20190412
  Transmission Date: 20190711
  Serious: Yes (Other)
  Sender: FDA-Public Use
  Company Number: None

PATIENT
  Sex: Male
  Weight: 67.3 kg

DRUGS (8)
  1. CALCIUM + VITAMIN D3 [Concomitant]
     Active Substance: CALCIUM\CHOLECALCIFEROL
  2. LOSARTAN. [Concomitant]
     Active Substance: LOSARTAN
  3. CAPECITABINE. [Suspect]
     Active Substance: CAPECITABINE
     Indication: OESOPHAGEAL CARCINOMA
     Route: 048
     Dates: start: 20190327
  4. METOPROLOL. [Concomitant]
     Active Substance: METOPROLOL
  5. ELIQUIS [Concomitant]
     Active Substance: APIXABAN
  6. SIMVASTATIN. [Concomitant]
     Active Substance: SIMVASTATIN
  7. TAMSULOSIN [Concomitant]
     Active Substance: TAMSULOSIN
  8. FUROSEMIDE. [Concomitant]
     Active Substance: FUROSEMIDE

REACTIONS (4)
  - Dehydration [None]
  - Diarrhoea [None]
  - Somnolence [None]
  - Rash [None]
